FAERS Safety Report 9714608 (Version 1)
Quarter: 2013Q4

REPORT INFORMATION
  Report Type: Spontaneous
  Country: GB (occurrence: GB)
  Receive Date: 20131126
  Receipt Date: 20131126
  Transmission Date: 20140711
  Serious: Yes (Other)
  Sender: FDA-Public Use
  Company Number: GB-B.I. PHARMACEUTICALS,INC./RIDGEFIELD-2013-BI-38696UK

PATIENT
  Age: 66 Year
  Sex: Male

DRUGS (8)
  1. TRAJENTA [Suspect]
     Indication: DIABETES MELLITUS
     Route: 048
     Dates: start: 20131101, end: 20131103
  2. GLICLAZIDE [Concomitant]
  3. METFORMIN [Concomitant]
  4. PARACETAMOL [Concomitant]
  5. RAMIPRIL [Concomitant]
  6. ROSUVASTATIN [Concomitant]
  7. TRAXAM [Concomitant]
     Dosage: TRAXAM STRENGTH 3%.
  8. XYLOPROCT [Concomitant]

REACTIONS (5)
  - Headache [Recovered/Resolved]
  - Pain in jaw [Recovered/Resolved]
  - Arthralgia [Recovered/Resolved]
  - Pain in extremity [Recovered/Resolved]
  - Musculoskeletal pain [Recovered/Resolved]
